FAERS Safety Report 25640178 (Version 1)
Quarter: 2025Q3

REPORT INFORMATION
  Report Type: Spontaneous
  Country: KR (occurrence: KR)
  Receive Date: 20250804
  Receipt Date: 20250804
  Transmission Date: 20251020
  Serious: Yes (Other)
  Sender: FERRING
  Company Number: KR-FERRINGPH-2025FE04114

PATIENT

DRUGS (1)
  1. DESMOPRESSIN [Suspect]
     Active Substance: DESMOPRESSIN
     Indication: Breast cancer
     Dosage: 14.7 UG, DAILY
     Route: 065
     Dates: start: 20200903, end: 20200903

REACTIONS (2)
  - Paralysis [Recovered/Resolved]
  - Product use in unapproved indication [Recovered/Resolved]

NARRATIVE: CASE EVENT DATE: 20200903
